FAERS Safety Report 10593047 (Version 1)
Quarter: 2014Q4

REPORT INFORMATION
  Report Type: Spontaneous
  Country: US (occurrence: None)
  Receive Date: 20141118
  Receipt Date: 20141118
  Transmission Date: 20150529
  Serious: Yes (Hospitalization)
  Sender: FDA-Public Use
  Company Number: None

PATIENT
  Age: 65 Year
  Sex: Male
  Weight: 65.77 kg

DRUGS (2)
  1. SULFAMETHOXAZOLE\TRIMETHOPRIM [Suspect]
     Active Substance: SULFAMETHOXAZOLE\TRIMETHOPRIM
     Indication: RASH
     Dosage: 1 TWICE DAILY, TAKEN BY MOUTH
     Route: 048
     Dates: start: 20140917, end: 20140919
  2. SULFAMETHOXAZOLE\TRIMETHOPRIM [Suspect]
     Active Substance: SULFAMETHOXAZOLE\TRIMETHOPRIM
     Dosage: 1 TWICE DAILY, TAKEN BY MOUTH
     Route: 048
     Dates: start: 20140917, end: 20140919

REACTIONS (3)
  - Swelling face [None]
  - Swelling [None]
  - Hypersensitivity [None]

NARRATIVE: CASE EVENT DATE: 20140919
